FAERS Safety Report 8905426 (Version 1)
Quarter: 2012Q4

REPORT INFORMATION
  Report Type: 
  Country: NL (occurrence: NL)
  Receive Date: 20121111
  Receipt Date: 20121111
  Transmission Date: 20130627
  Serious: Yes (Death, Hospitalization)
  Sender: FDA-Public Use
  Company Number: PHHY2012NL093932

PATIENT
  Age: 71 None
  Sex: Male

DRUGS (4)
  1. ZOMETA [Suspect]
     Indication: PROSTATE CANCER METASTATIC
     Dosage: 4 mg/100ml once per 28 days
  2. ZOMETA [Suspect]
     Dosage: 4 mg/100ml once per 28 days
     Dates: start: 20111027
  3. ZOMETA [Suspect]
     Dosage: 4 mg/100ml once per 28 days
     Dates: start: 20120828
  4. ZOMETA [Suspect]
     Dosage: 4 mg/100ml once per 28 days
     Dates: start: 20120925

REACTIONS (3)
  - Death [Fatal]
  - Anxiety [Recovered/Resolved]
  - Dyspnoea [Recovered/Resolved]
